FAERS Safety Report 8840850 (Version 1)
Quarter: 2012Q4

REPORT INFORMATION
  Report Type: 
  Country: US (occurrence: US)
  Receive Date: 20121015
  Receipt Date: 20121015
  Transmission Date: 20130627
  Serious: Yes (Other)
  Sender: FDA-Public Use
  Company Number: US-ASTRAZENECA-2012SE76498

PATIENT
  Age: 35 Year
  Sex: Female
  Weight: 68 kg

DRUGS (9)
  1. NEXIUM [Suspect]
     Indication: GASTROOESOPHAGEAL REFLUX DISEASE
     Route: 048
     Dates: start: 2006, end: 2012
  2. NEXIUM [Suspect]
     Indication: HELICOBACTER INFECTION
     Route: 048
     Dates: start: 2006, end: 2012
  3. NEXIUM [Suspect]
     Indication: DYSPEPSIA
     Route: 048
     Dates: start: 2006, end: 2012
  4. NEXIUM [Suspect]
     Indication: GASTROOESOPHAGEAL REFLUX DISEASE
     Route: 048
     Dates: start: 2012
  5. NEXIUM [Suspect]
     Indication: HELICOBACTER INFECTION
     Route: 048
     Dates: start: 2012
  6. NEXIUM [Suspect]
     Indication: DYSPEPSIA
     Route: 048
     Dates: start: 2012
  7. METOPROLOL [Suspect]
     Indication: HEART RATE ABNORMAL
     Dosage: GENERIC
     Route: 048
     Dates: start: 201201
  8. LORAZEPAM [Concomitant]
     Indication: ANXIETY
     Route: 048
     Dates: start: 2006
  9. COLCRY [Concomitant]
     Indication: PERICARDITIS
     Route: 048

REACTIONS (7)
  - Pericarditis [Unknown]
  - Weight decreased [Unknown]
  - Diverticulitis [Unknown]
  - Chest pain [Unknown]
  - Weight increased [Unknown]
  - Eructation [Unknown]
  - Off label use [Unknown]
